FAERS Safety Report 9249251 (Version 1)
Quarter: 2013Q2

REPORT INFORMATION
  Report Type: Spontaneous
  Country: US (occurrence: US)
  Receive Date: 20130423
  Receipt Date: 20130423
  Transmission Date: 20140414
  Serious: Yes (Hospitalization)
  Sender: FDA-Public Use
  Company Number: US-ASTRAZENECA-2013SE25285

PATIENT
  Sex: Male

DRUGS (11)
  1. SYMBICORT [Suspect]
     Indication: CHRONIC OBSTRUCTIVE PULMONARY DISEASE
     Dosage: 160/4.5 MCG, 2 PUFFS TWO TIMES A DAY
     Route: 055
     Dates: start: 2008
  2. SPIRIVA [Concomitant]
     Indication: CHRONIC OBSTRUCTIVE PULMONARY DISEASE
     Dosage: BID
     Route: 055
  3. ALBUTEROL NEBULIZER [Concomitant]
     Indication: CHRONIC OBSTRUCTIVE PULMONARY DISEASE
     Route: 055
  4. PRIMADONE [Concomitant]
     Indication: TREMOR
     Route: 048
     Dates: start: 2007
  5. PROPANOLOL [Concomitant]
     Indication: TREMOR
     Route: 048
     Dates: start: 2007
  6. XANAX [Concomitant]
     Indication: ANXIETY
     Route: 048
     Dates: start: 2007
  7. VALIUM [Concomitant]
     Indication: ANXIETY
     Route: 048
     Dates: start: 2007
  8. VALIUM [Concomitant]
     Indication: SLEEP DISORDER
     Route: 048
     Dates: start: 2007
  9. OXYCONTIN [Concomitant]
     Indication: PAIN
     Dosage: 15 MG 4-5 DAILY
     Route: 048
     Dates: start: 2009
  10. OXYGEN [Concomitant]
     Indication: OXYGEN SUPPLEMENTATION
     Dosage: 1.5 L/ MIN CONT
     Route: 055
     Dates: start: 2007
  11. OXYGEN [Concomitant]
     Indication: OXYGEN SUPPLEMENTATION
     Dosage: DOSE INCREASED TO AROUND THE CLOCK
     Route: 055
     Dates: start: 2008

REACTIONS (6)
  - Dyspnoea [Recovered/Resolved with Sequelae]
  - Respiratory failure [Recovered/Resolved with Sequelae]
  - Chronic obstructive pulmonary disease [Not Recovered/Not Resolved]
  - Increased upper airway secretion [Recovered/Resolved with Sequelae]
  - Hypercapnia [Recovered/Resolved with Sequelae]
  - Tremor [Not Recovered/Not Resolved]
